FAERS Safety Report 22656751 (Version 1)
Quarter: 2023Q2

REPORT INFORMATION
  Report Type: Spontaneous
  Country: US (occurrence: US)
  Receive Date: 20230630
  Receipt Date: 20230630
  Transmission Date: 20230721
  Serious: No
  Sender: FDA-Public Use
  Company Number: US-Accord-267923

PATIENT
  Age: 42 Year
  Sex: Male
  Weight: 50.35 kg

DRUGS (8)
  1. CLONAZEPAM [Suspect]
     Active Substance: CLONAZEPAM
     Indication: Autonomic nervous system imbalance
     Dosage: STRENGTH: 2 MG?DAILY
     Route: 048
     Dates: start: 20220622
  2. HYDROCORTISONE [Concomitant]
     Active Substance: HYDROCORTISONE
     Dosage: STRENGTH: 2.5%
  3. ACIPHEX [Concomitant]
     Active Substance: RABEPRAZOLE SODIUM
  4. RHINOCORT [Concomitant]
     Active Substance: BUDESONIDE
  5. ASTELIN [Concomitant]
     Active Substance: AZELASTINE HYDROCHLORIDE
  6. CARAFATE [Concomitant]
     Active Substance: SUCRALFATE
     Dosage: 1 GM AS NEEDED
  7. SCOPOLAMINE [Concomitant]
     Active Substance: SCOPOLAMINE
  8. CLONAZEPAM [Suspect]
     Active Substance: CLONAZEPAM
     Indication: Autonomic nervous system imbalance
     Dosage: STRENGTH: 2 MG?DAILY
     Route: 048

REACTIONS (4)
  - Dysgeusia [Not Recovered/Not Resolved]
  - Nausea [Not Recovered/Not Resolved]
  - Rash [Unknown]
  - Off label use [Unknown]

NARRATIVE: CASE EVENT DATE: 20220622
